APPROVED DRUG PRODUCT: CLOBETASOL PROPIONATE
Active Ingredient: CLOBETASOL PROPIONATE
Strength: 0.05%
Dosage Form/Route: SOLUTION;TOPICAL
Application: A206075 | Product #001 | TE Code: AT
Applicant: NOVEL LABORATORIES INC
Approved: Nov 23, 2015 | RLD: No | RS: No | Type: RX